FAERS Safety Report 15749202 (Version 1)
Quarter: 2018Q4

REPORT INFORMATION
  Report Type: Report from Study
  Country: None (occurrence: IL)
  Receive Date: 20181221
  Receipt Date: 20181221
  Transmission Date: 20190205
  Serious: Yes (Hospitalization, Other)
  Sender: FDA-Public Use
  Company Number: IL-ABBVIE-18K-082-2272289-00

PATIENT
  Age: 64 Year
  Sex: Female

DRUGS (5)
  1. IRON [Suspect]
     Active Substance: IRON
     Indication: BLOOD IRON DECREASED
     Route: 042
  2. NEXIUM [Concomitant]
     Active Substance: ESOMEPRAZOLE MAGNESIUM
     Indication: PRODUCT USED FOR UNKNOWN INDICATION
  3. DUODOPA [Suspect]
     Active Substance: CARBIDOPA\LEVODOPA
     Dosage: MD 14.5ML, CD 4.4ML/HOUR, ED 0.8ML
     Route: 050
     Dates: start: 2018
  4. ASPIRIN. [Suspect]
     Active Substance: ASPIRIN
     Indication: PRODUCT USED FOR UNKNOWN INDICATION
     Route: 065
     Dates: start: 201812
  5. DUODOPA [Suspect]
     Active Substance: CARBIDOPA\LEVODOPA
     Indication: PARKINSON^S DISEASE
     Dosage: MD 14.5ML, CD 4.1ML/HOUR, ED 0.5ML.
     Route: 050
     Dates: start: 20180201, end: 2018

REACTIONS (10)
  - Weight decreased [Unknown]
  - Stoma site pain [Not Recovered/Not Resolved]
  - Hypophagia [Unknown]
  - Iron overload [Unknown]
  - Vomiting [Recovered/Resolved]
  - Vomiting [Not Recovered/Not Resolved]
  - Nausea [Recovered/Resolved]
  - Drug hypersensitivity [Unknown]
  - Dysphagia [Unknown]
  - Abdominal pain [Not Recovered/Not Resolved]

NARRATIVE: CASE EVENT DATE: 2018
